FAERS Safety Report 8510540-1 (Version None)
Quarter: 2012Q3

REPORT INFORMATION
  Report Type: 
  Country: None (occurrence: None)
  Receive Date: 20120716
  Receipt Date: 20120709
  Transmission Date: 20120928
  Serious: No
  Sender: FDA-Public Use
  Company Number: US-009507513-1207USA002207

PATIENT

DRUGS (5)
  1. VITAMINS (UNSPECIFIED) [Concomitant]
  2. COZAAR [Suspect]
     Indication: BLOOD PRESSURE FLUCTUATION
     Dosage: 25 MG, UNK
     Route: 048
     Dates: start: 20120705
  3. GLIPIZIDE [Concomitant]
  4. COZAAR [Suspect]
     Indication: ARRHYTHMIA
  5. SYNTHROID [Concomitant]

REACTIONS (2)
  - WRONG TECHNIQUE IN DRUG USAGE PROCESS [None]
  - COUGH [None]
